FAERS Safety Report 11750669 (Version 1)
Quarter: 2015Q4

REPORT INFORMATION
  Report Type: Spontaneous
  Country: US (occurrence: US)
  Receive Date: 20151118
  Receipt Date: 20151118
  Transmission Date: 20160304
  Serious: Yes (Other)
  Sender: FDA-Public Use
  Company Number: US-PFIZER INC-2015393905

PATIENT
  Age: 74 Year
  Sex: Female

DRUGS (5)
  1. BLACK COHOSH [Concomitant]
     Active Substance: BLACK COHOSH
     Dosage: UNK
  2. ESTROVEN EXTRA STRENGTH [Concomitant]
     Dosage: UNK
  3. GAS RELIEF [Concomitant]
     Active Substance: DIMETHICONE
     Dosage: UNK
  4. IBUPROFEN. [Concomitant]
     Active Substance: IBUPROFEN
     Dosage: UNK
  5. XELJANZ [Suspect]
     Active Substance: TOFACITINIB CITRATE
     Dosage: 5 MG TABLET
     Dates: start: 20150122

REACTIONS (2)
  - Sepsis [Unknown]
  - Hypotension [Unknown]
